FAERS Safety Report 5124486-2 (Version None)
Quarter: 2006Q4

REPORT INFORMATION
  Report Type: 
  Country: None (occurrence: None)
  Receive Date: 20060821
  Receipt Date: 20060523
  Transmission Date: 20070319
  Serious: No
  Sender: FDA-Public Use
  Company Number: TPA2006A00350

PATIENT
  Age: 35 Year
  Sex: Male
  Weight: 136.0791 kg

DRUGS (3)
  1. ROZEREM [Suspect]
     Indication: INSOMNIA
     Dosage: 8 MG, HS, PER ORAL
     Route: 048
     Dates: start: 20051228, end: 20060218
  2. LAMICTAL [Concomitant]
  3. TOPROL-XL [Concomitant]

REACTIONS (1)
  - RASH [None]
